FAERS Safety Report 24458837 (Version 1)
Quarter: 2024Q4

REPORT INFORMATION
  Report Type: Spontaneous
  Country: US (occurrence: None)
  Receive Date: 20241017
  Receipt Date: 20241017
  Transmission Date: 20250115
  Serious: No
  Sender: Public
  Company Number: None

PATIENT
  Age: 46 Year
  Sex: Female
  Weight: 171 kg

DRUGS (1)
  1. VENOFER [Suspect]
     Active Substance: IRON SUCROSE
     Indication: Anaemia
     Dosage: OTHER FREQUENCY : OTHER FREQUENCY;?
     Route: 041
     Dates: start: 20241010, end: 20241010

REACTIONS (4)
  - Malaise [None]
  - Chest discomfort [None]
  - Infusion related reaction [None]
  - Therapy cessation [None]

NARRATIVE: CASE EVENT DATE: 20241017
